FAERS Safety Report 25726140 (Version 1)
Quarter: 2025Q3

REPORT INFORMATION
  Report Type: Spontaneous
  Country: US (occurrence: None)
  Receive Date: 20250824
  Receipt Date: 20250824
  Transmission Date: 20251021
  Serious: Yes (Other)
  Sender: FDA-CTU
  Company Number: None

PATIENT
  Age: 78 Year
  Sex: Female
  Weight: 72.45 kg

DRUGS (8)
  1. LEQVIO [Suspect]
     Active Substance: INCLISIRAN SODIUM
     Indication: Hypercholesterolaemia
     Route: 050
     Dates: start: 20250625, end: 20250625
  2. PREDNISONE [Suspect]
     Active Substance: PREDNISONE
  3. long leg KAFO brace due to post-polio syndrome [Concomitant]
  4. LEXAPRO [Concomitant]
     Active Substance: ESCITALOPRAM OXALATE
  5. METOPROLOL [Concomitant]
     Active Substance: METOPROLOL
  6. Xanax baby aspirin synthroid [Concomitant]
  7. LUMIGAN [Concomitant]
     Active Substance: BIMATOPROST
  8. ASPIRIN [Concomitant]
     Active Substance: ASPIRIN

REACTIONS (7)
  - Rash [None]
  - Erythema [None]
  - Eyelid ptosis [None]
  - Skin burning sensation [None]
  - Agitation [None]
  - Rash [None]
  - Rash [None]

NARRATIVE: CASE EVENT DATE: 20250625
